FAERS Safety Report 5767127-3 (Version None)
Quarter: 2008Q2

REPORT INFORMATION
  Report Type: 
  Country: None (occurrence: None)
  Receive Date: 20080609
  Receipt Date: 20080602
  Transmission Date: 20081010
  Serious: Yes (Other)
  Sender: FDA-Public Use
  Company Number: 8033183

PATIENT
  Age: 64 Year
  Sex: Female

DRUGS (2)
  1. XAZAL [Suspect]
     Dosage: PO
     Route: 048
     Dates: start: 20080301, end: 20080430
  2. LOFTON [Concomitant]

REACTIONS (1)
  - BLOOD PRESSURE INCREASED [None]
